FAERS Safety Report 9914292 (Version 1)
Quarter: 2014Q1

REPORT INFORMATION
  Report Type: Spontaneous
  Country: IT (occurrence: None)
  Receive Date: 20140218
  Receipt Date: 20140218
  Transmission Date: 20141002
  Serious: Yes (Disabling)
  Sender: FDA-Public Use
  Company Number: 2014AP001122

PATIENT
  Age: 72 Year
  Sex: Male

DRUGS (11)
  1. QUETIAPINE [Suspect]
     Indication: PSYCHOTHERAPY
  2. RANOLAZINE [Suspect]
     Indication: ANGINA PECTORIS
     Dates: start: 201107
  3. ASPIRIN [Suspect]
  4. BISOPROLOL [Suspect]
  5. ALLOPURINOL [Suspect]
  6. OMEPRAZOLE [Suspect]
  7. FUROSEMIDE [Suspect]
  8. SERTRALINE [Suspect]
     Indication: ANTIDEPRESSANT THERAPY
  9. ATORVASTATIN (ATORVASTATIN) [Concomitant]
  10. NITROGLYCERIN (GLYCERYL TRINITRATE) [Concomitant]
  11. VALSARTAN [Concomitant]

REACTIONS (6)
  - Rhabdomyolysis [None]
  - Drug interaction [None]
  - Toxicity to various agents [None]
  - Nausea [None]
  - Vomiting [None]
  - Fall [None]
